FAERS Safety Report 4339023-X (Version None)
Quarter: 2004Q2

REPORT INFORMATION
  Report Type: 
  Country: None (occurrence: None)
  Receive Date: 20040412
  Receipt Date: 20040326
  Transmission Date: 20050107
  Serious: Yes (Death, Hospitalization)
  Sender: FDA-Public Use
  Company Number: 188018

PATIENT
  Age: 83 Year
  Sex: Female

DRUGS (15)
  1. AVONEX [Suspect]
     Indication: MULTIPLE SCLEROSIS
     Dosage: 30 MCG QW IM
     Dates: start: 20001002, end: 20030819
  2. AVONEX [Suspect]
     Indication: MULTIPLE SCLEROSIS
     Dosage: 30 MCG QW IM
     Dates: start: 20030826, end: 20030916
  3. SINGULAIR [Concomitant]
  4. PROVENTIL [Concomitant]
  5. SYNTHROID [Concomitant]
  6. ASPIRIN [Concomitant]
  7. SEREVENT [Concomitant]
  8. FLOVENT [Concomitant]
  9. PLAVIX [Concomitant]
  10. ARICEPT [Concomitant]
  11. OXYBUTYNIN [Concomitant]
  12. PREDNISONE [Concomitant]
  13. XALATAN [Concomitant]
  14. ALPHAGAN [Concomitant]
  15. AMARYL [Concomitant]

REACTIONS (6)
  - CARDIAC FAILURE [None]
  - CARDIAC FAILURE CONGESTIVE [None]
  - CARDIOGENIC SHOCK [None]
  - CONDITION AGGRAVATED [None]
  - MYOCARDIAL INFARCTION [None]
  - PNEUMONIA [None]
